FAERS Safety Report 23188535 (Version 1)
Quarter: 2023Q4

REPORT INFORMATION
  Report Type: Other
  Country: None (occurrence: AU)
  Receive Date: 20231115
  Receipt Date: 20231115
  Transmission Date: 20240110
  Serious: Yes (Life-Threatening, Hospitalization)
  Sender: FDA-Public Use
  Company Number: AU-B.Braun Medical Inc.-2148326

PATIENT
  Age: 54 Year
  Sex: Male

DRUGS (10)
  1. ACETAMINOPHEN [Suspect]
     Active Substance: ACETAMINOPHEN
     Indication: Pain
  2. IBUPROFEN [Suspect]
     Active Substance: IBUPROFEN
  3. PIPERACILLIN SODIUM\TAZOBACTAM SODIUM [Concomitant]
     Active Substance: PIPERACILLIN SODIUM\TAZOBACTAM SODIUM
  4. MEROPENEM [Concomitant]
     Active Substance: MEROPENEM
  5. VANCOMYCIN [Concomitant]
     Active Substance: VANCOMYCIN
  6. LINCOMYCIN [Concomitant]
     Active Substance: LINCOMYCIN
  7. SODIUM BICARBONATE [Concomitant]
     Active Substance: SODIUM BICARBONATE
  8. Potassium supplementation [Concomitant]
  9. ACETYLCYSTEINE [Concomitant]
     Active Substance: ACETYLCYSTEINE
  10. CEFAZOLIN [Concomitant]
     Active Substance: CEFAZOLIN

REACTIONS (6)
  - Hypokalaemia [None]
  - Metabolic acidosis [None]
  - Acute kidney injury [None]
  - Acidosis hyperchloraemic [None]
  - Renal tubular acidosis [None]
  - Pyroglutamic acidosis [None]
